FAERS Safety Report 8911626 (Version 1)
Quarter: 2012Q4

REPORT INFORMATION
  Report Type: 
  Country: US (occurrence: US)
  Receive Date: 20121115
  Receipt Date: 20121115
  Transmission Date: 20130627
  Serious: Yes (Hospitalization, Other)
  Sender: FDA-Public Use
  Company Number: US-ASTRAZENECA-2010SE36430

PATIENT
  Age: 68 Year
  Sex: Female
  Weight: 84.8 kg

DRUGS (31)
  1. SYMBICORT [Suspect]
     Indication: CHRONIC OBSTRUCTIVE PULMONARY DISEASE
     Dosage: 160/4.5 MCG, 2 PUFFS, TWO TIMES DAY
     Route: 055
     Dates: start: 2009
  2. SYMBICORT [Suspect]
     Indication: ASTHMA
     Dosage: 160/4.5 MCG, 2 PUFFS, TWO TIMES DAY
     Route: 055
     Dates: start: 2009
  3. SYMBICORT [Suspect]
     Indication: CHRONIC OBSTRUCTIVE PULMONARY DISEASE
     Dosage: 160/4.5 MCG, 2 PUFFS, TWO TIMES DAY
     Route: 055
     Dates: start: 20110321
  4. SYMBICORT [Suspect]
     Indication: ASTHMA
     Dosage: 160/4.5 MCG, 2 PUFFS, TWO TIMES DAY
     Route: 055
     Dates: start: 20110321
  5. ADVAIR [Suspect]
     Route: 065
  6. PREDNISONE [Suspect]
     Route: 048
  7. PREDNISONE [Suspect]
     Route: 048
  8. PREDNISONE [Suspect]
     Route: 048
  9. ALBUTEROL [Concomitant]
  10. COMBIVENT [Concomitant]
     Indication: CHRONIC OBSTRUCTIVE PULMONARY DISEASE
     Route: 055
  11. SPIRIVA [Concomitant]
     Indication: CHRONIC OBSTRUCTIVE PULMONARY DISEASE
  12. HYDROCORT [Concomitant]
  13. LEVOTHYROXINE [Concomitant]
     Indication: HYPOTHYROIDISM
     Route: 048
  14. ALPRAZOLAM [Concomitant]
     Indication: INSOMNIA
  15. BUPROPION [Concomitant]
     Indication: ANXIETY
  16. BUPROPION [Concomitant]
     Indication: DEPRESSION
  17. XOPENEX [Concomitant]
  18. B COMPLEX [Concomitant]
     Route: 048
  19. CHROMIUM PICOLINATE [Concomitant]
     Route: 048
  20. CORTEF [Concomitant]
     Route: 048
  21. COZAAR [Concomitant]
     Route: 048
  22. IMODIUM A-D [Concomitant]
     Route: 048
  23. MULTIVITAMINS [Concomitant]
  24. ASA/TYLENOL/CAFFEINE [Concomitant]
  25. PROVENTIL [Concomitant]
     Dosage: 2 PUFFS, Q 4-6 HRS AS NEEDED
     Route: 055
  26. SIMETHICONE [Concomitant]
     Indication: FLATULENCE
     Dosage: 2-3 Q6 PRN
     Route: 048
  27. VITAMIN D [Concomitant]
     Dosage: 50000 IU weekly
     Route: 048
  28. VITAMIN E [Concomitant]
     Dosage: 1000 IU
     Route: 048
  29. WELLBUTRIN [Concomitant]
     Route: 048
  30. XANAX [Concomitant]
     Indication: INSOMNIA
     Dosage: 1-2 QHS, PRN
     Route: 048
  31. ZANTAC [Concomitant]

REACTIONS (22)
  - Cardiomyopathy [Unknown]
  - Ejection fraction decreased [Unknown]
  - Fatigue [Unknown]
  - Non-cardiac chest pain [Unknown]
  - Cardiac failure congestive [Unknown]
  - Dyspnoea [Unknown]
  - Chronic obstructive pulmonary disease [Recovered/Resolved with Sequelae]
  - Tongue haemorrhage [Unknown]
  - Vision blurred [Unknown]
  - Oedema peripheral [Unknown]
  - Joint swelling [Unknown]
  - Influenza [Unknown]
  - Lung disorder [Unknown]
  - Hypoxia [Unknown]
  - Asthma [Unknown]
  - Weight decreased [Unknown]
  - Drug ineffective [Unknown]
  - Intervertebral disc degeneration [Unknown]
  - Obesity [Unknown]
  - Flatulence [Unknown]
  - Flatulence [Unknown]
  - Eructation [Unknown]
